FAERS Safety Report 23723700 (Version 4)
Quarter: 2024Q2

REPORT INFORMATION
  Report Type: Report from Study
  Country: EG (occurrence: EG)
  Receive Date: 20240409
  Receipt Date: 20240520
  Transmission Date: 20240716
  Serious: Yes (Other)
  Sender: FDA-Public Use
  Company Number: EG-002147023-NVSC2024EG072493

PATIENT
  Sex: Male

DRUGS (3)
  1. COSENTYX [Suspect]
     Active Substance: SECUKINUMAB
     Indication: Psoriatic arthropathy
     Dosage: 1 DOSAGE FORM, QW (ONE PREFILLED  SUBCUTANEO US PEN OF  COSENTYX  150MG EVERY WEEK FOR 14 WEEKS AS L
     Route: 058
     Dates: start: 2021
  2. COSENTYX [Suspect]
     Active Substance: SECUKINUMAB
     Dosage: 1 DOSAGE FORM, QMO (AS MAINTAINANCE DOSE)
     Route: 058
     Dates: end: 2023
  3. COSENTYX [Suspect]
     Active Substance: SECUKINUMAB
     Dosage: 1 DOSAGE FORM, QMO (ONE PREFILLED SUBCUTANOUS PEN OF COSENTYX 150MG EVERY MONTH AS MAINTENANCE DOSE
     Route: 058

REACTIONS (9)
  - Haemoglobin increased [Recovering/Resolving]
  - Abnormal clotting factor [Not Recovered/Not Resolved]
  - Arthralgia [Not Recovered/Not Resolved]
  - Peripheral swelling [Unknown]
  - Movement disorder [Unknown]
  - Insomnia [Unknown]
  - Bone erosion [Unknown]
  - Drug ineffective [Not Recovered/Not Resolved]
  - Off label use [Recovered/Resolved]

NARRATIVE: CASE EVENT DATE: 20210101
